FAERS Safety Report 17484640 (Version 1)
Quarter: 2020Q1

REPORT INFORMATION
  Report Type: Spontaneous
  Country: JP (occurrence: JP)
  Receive Date: 20200302
  Receipt Date: 20200302
  Transmission Date: 20200409
  Serious: Yes (Hospitalization, Other)
  Sender: FDA-Public Use
  Company Number: JP-JNJFOC-20190542227

PATIENT
  Age: 27 Year
  Sex: Female

DRUGS (8)
  1. PAROXETINE HYDROCHLORIDE. [Concomitant]
     Active Substance: PAROXETINE HYDROCHLORIDE
  2. OLANZAPINE. [Concomitant]
     Active Substance: OLANZAPINE
  3. FLUNITRAZEPAM [Concomitant]
     Active Substance: FLUNITRAZEPAM
  4. CHLORPROMAZINE HYDROCHLORIDE. [Concomitant]
     Active Substance: CHLORPROMAZINE HYDROCHLORIDE
  5. ETHYL LOFLAZEPATE [Concomitant]
     Active Substance: ETHYL LOFLAZEPATE
     Route: 048
  6. ATOMOXETINE HYDROCHLORIDE. [Concomitant]
     Active Substance: ATOMOXETINE HYDROCHLORIDE
     Route: 048
  7. CONCERTA [Suspect]
     Active Substance: METHYLPHENIDATE HYDROCHLORIDE
     Indication: PRODUCT USED FOR UNKNOWN INDICATION
     Route: 048
  8. SODIUM VALPROATE [Concomitant]
     Active Substance: VALPROATE SODIUM

REACTIONS (6)
  - Overdose [Unknown]
  - Drug abuse [Unknown]
  - Drug diversion [Unknown]
  - Mental disorder [Unknown]
  - Exposure during pregnancy [Unknown]
  - Drug dependence [Unknown]
